FAERS Safety Report 6662916-5 (Version None)
Quarter: 2010Q1

REPORT INFORMATION
  Report Type: 
  Country: None (occurrence: None)
  Receive Date: 20100323
  Receipt Date: 20091123
  Transmission Date: 20100710
  Serious: No
  Sender: FDA-Public Use
  Company Number: 2009US000039

PATIENT
  Age: 42 Year
  Sex: Female

DRUGS (7)
  1. ENTEREG [Suspect]
     Indication: POSTOPERATIVE ILEUS
     Dosage: 12 MG; PO
     Route: 048
     Dates: start: 20091027, end: 20091101
  2. HEPARIN [Concomitant]
  3. REGITINE [Concomitant]
  4. MORPHINE [Concomitant]
  5. LOPRESSOR [Concomitant]
  6. PEPCID [Concomitant]
  7. ZOFRAN [Concomitant]

REACTIONS (1)
  - OPERATIVE HAEMORRHAGE [None]
